FAERS Safety Report 7299302-3 (Version None)
Quarter: 2010Q4

REPORT INFORMATION
  Report Type: 
  Country: None (occurrence: None)
  Receive Date: 20101223
  Receipt Date: 20100503
  Transmission Date: 20110411
  Serious: Yes (Other)
  Sender: FDA-Public Use
  Company Number: 231081USA

PATIENT
  Age: 34 Year
  Sex: Female

DRUGS (2)
  1. PARAGARD T 380A [Suspect]
     Indication: CONTRACEPTION
     Dosage: I.U.
     Dates: start: 20100408, end: 20100408
  2. IRON [Concomitant]

REACTIONS (5)
  - CHILLS [None]
  - HYPERVENTILATION [None]
  - LOSS OF CONSCIOUSNESS [None]
  - MUSCLE SPASMS [None]
  - PAIN [None]
